FAERS Safety Report 4533961-0 (Version None)
Quarter: 2004Q4

REPORT INFORMATION
  Report Type: 
  Country: None (occurrence: None)
  Receive Date: 20041221
  Receipt Date: 20041221
  Transmission Date: 20050328
  Serious: No
  Sender: FDA-Public Use
  Company Number: None

PATIENT
  Age: 25 Year
  Sex: Male
  Weight: 104.3273 kg

DRUGS (3)
  1. STRATTERA [Suspect]
     Indication: ATTENTION DEFICIT/HYPERACTIVITY DISORDER
     Dosage: 60MG  ONCE DAILY ORAL  AM
     Route: 048
     Dates: start: 20041213, end: 20041219
  2. WELLBUTRIN [Concomitant]
  3. AMBIEN [Concomitant]

REACTIONS (16)
  - ABDOMINAL PAIN UPPER [None]
  - ANOREXIA [None]
  - ARTHRITIS [None]
  - ARTHROPATHY [None]
  - BACK PAIN [None]
  - CHILLS [None]
  - CHROMATURIA [None]
  - DYSURIA [None]
  - ERECTILE DYSFUNCTION [None]
  - HEADACHE [None]
  - HYPERHIDROSIS [None]
  - INSOMNIA [None]
  - LETHARGY [None]
  - ORGASM ABNORMAL [None]
  - PRURITUS [None]
  - YAWNING [None]
